FAERS Safety Report 7980560-4 (Version None)
Quarter: 2011Q4

REPORT INFORMATION
  Report Type: 
  Country: None (occurrence: None)
  Receive Date: 20111214
  Receipt Date: 20111205
  Transmission Date: 20120403
  Serious: Yes (Other)
  Sender: FDA-Public Use
  Company Number: US-ASTRAZENECA-2010SE55163

PATIENT
  Age: 28 Year
  Sex: Female

DRUGS (3)
  1. PULMICORT FLEXHALER [Suspect]
     Route: 055
  2. NEXIUM [Suspect]
     Route: 048
  3. RHINOCORT [Suspect]
     Route: 045

REACTIONS (3)
  - MATERNAL EXPOSURE DURING PREGNANCY [None]
  - NEOPLASM MALIGNANT [None]
  - DRUG DOSE OMISSION [None]
